FAERS Safety Report 6508982-9 (Version None)
Quarter: 2009Q4

REPORT INFORMATION
  Report Type: 
  Country: None (occurrence: None)
  Receive Date: 20091221
  Receipt Date: 20090914
  Transmission Date: 20100525
  Serious: No
  Sender: FDA-Public Use
  Company Number: US-ASTRAZENECA-2009SE13061

PATIENT
  Age: 69 Year
  Sex: Male
  Weight: 68 kg

DRUGS (4)
  1. CRESTOR [Suspect]
     Route: 048
  2. AVODART [Concomitant]
  3. EYE DROPS [Concomitant]
  4. SUPPLEMENTS [Concomitant]

REACTIONS (2)
  - ASTHENIA [None]
  - MOBILITY DECREASED [None]
